FAERS Safety Report 15476619 (Version 2)
Quarter: 2018Q4

REPORT INFORMATION
  Report Type: Spontaneous
  Country: US (occurrence: US)
  Receive Date: 20181009
  Receipt Date: 20181112
  Transmission Date: 20190205
  Serious: Yes (Other)
  Sender: FDA-Public Use
  Company Number: US-ROCHE-2103153

PATIENT
  Age: 51 Year
  Sex: Female
  Weight: 87.17 kg

DRUGS (3)
  1. TRULICITY [Concomitant]
     Active Substance: DULAGLUTIDE
  2. OCREVUS [Suspect]
     Active Substance: OCRELIZUMAB
     Indication: PRIMARY PROGRESSIVE MULTIPLE SCLEROSIS
     Dosage: ONGOING: YES
     Route: 065
     Dates: start: 201801
  3. OCREVUS [Suspect]
     Active Substance: OCRELIZUMAB
     Dosage: SECOND DOSE
     Route: 065
     Dates: start: 20180703

REACTIONS (6)
  - Hypohidrosis [Unknown]
  - Pruritus [Recovered/Resolved]
  - General physical health deterioration [Recovered/Resolved]
  - Nuclear magnetic resonance imaging abnormal [Unknown]
  - Swelling face [Recovered/Resolved]
  - Swelling [Recovered/Resolved]

NARRATIVE: CASE EVENT DATE: 201801
